FAERS Safety Report 24322142 (Version 1)
Quarter: 2024Q3

REPORT INFORMATION
  Report Type: Spontaneous
  Country: CN (occurrence: CN)
  Receive Date: 20240916
  Receipt Date: 20240916
  Transmission Date: 20241017
  Serious: Yes (Other)
  Sender: DR REDDYS
  Company Number: None

PATIENT
  Age: 50 Year
  Sex: Male

DRUGS (2)
  1. OLANZAPINE [Suspect]
     Active Substance: OLANZAPINE
     Indication: Symptomatic treatment
     Dosage: 5MG,QD
     Route: 048
     Dates: start: 20240628, end: 20240830
  2. RISPERIDONE [Suspect]
     Active Substance: RISPERIDONE
     Indication: Symptomatic treatment
     Dosage: 1MG,BID
     Route: 048
     Dates: start: 20240628, end: 20240830

REACTIONS (1)
  - Tardive dyskinesia [Unknown]

NARRATIVE: CASE EVENT DATE: 20240831
